FAERS Safety Report 10505421 (Version 1)
Quarter: 2014Q4

REPORT INFORMATION
  Report Type: Spontaneous
  Country: US (occurrence: US)
  Receive Date: 20141008
  Receipt Date: 20141008
  Transmission Date: 20150528
  Serious: No
  Sender: FDA-Public Use
  Company Number: US-BAYER-2014-148066

PATIENT
  Age: 77 Year
  Sex: Female
  Weight: 59.86 kg

DRUGS (5)
  1. TRILAFON [Concomitant]
     Active Substance: PERPHENAZINE
     Dosage: UNK
  2. ALEVE [Suspect]
     Active Substance: NAPROXEN SODIUM
     Indication: BACK PAIN
     Dosage: 1-2 DF, UNK
     Route: 048
     Dates: start: 20140930
  3. LOXAPINE. [Concomitant]
     Active Substance: LOXAPINE SUCCINATE
     Dosage: UNK
  4. HYDROXYZINE [Concomitant]
     Active Substance: HYDROXYZINE\HYDROXYZINE HYDROCHLORIDE
     Dosage: UNK
  5. CARBIDOPA W/LEVODOPA [Concomitant]
     Active Substance: CARBIDOPA\LEVODOPA
     Dosage: UNK

REACTIONS (2)
  - Drug ineffective [None]
  - Incorrect dose administered [None]

NARRATIVE: CASE EVENT DATE: 20140930
